FAERS Safety Report 24761863 (Version 1)
Quarter: 2024Q4

REPORT INFORMATION
  Report Type: Report from Study
  Country: US (occurrence: US)
  Receive Date: 20241221
  Receipt Date: 20241221
  Transmission Date: 20250114
  Serious: Yes (Other)
  Sender: ABBVIE
  Company Number: US-ABBVIE-6050838

PATIENT
  Age: 36 Year
  Sex: Female

DRUGS (1)
  1. RINVOQ [Suspect]
     Active Substance: UPADACITINIB
     Indication: Product used for unknown indication
     Route: 048
     Dates: start: 20241116

REACTIONS (9)
  - Surgery [Unknown]
  - Drug ineffective [Unknown]
  - Vomiting [Unknown]
  - Feeling abnormal [Unknown]
  - Ulcer [Unknown]
  - Dry eye [Unknown]
  - Foot deformity [Unknown]
  - Sitting disability [Unknown]
  - Dysstasia [Unknown]

NARRATIVE: CASE EVENT DATE: 20240101
